FAERS Safety Report 8790286 (Version 3)
Quarter: 2013Q3

REPORT INFORMATION
  Report Type: Spontaneous
  Country: US (occurrence: US)
  Receive Date: 20120917
  Receipt Date: 20130812
  Transmission Date: 20140515
  Serious: Yes (Hospitalization)
  Sender: FDA-Public Use
  Company Number: US-BAYER-2012-096067

PATIENT
  Age: 41 Year
  Sex: Female
  Weight: 95 kg

DRUGS (15)
  1. YASMIN [Suspect]
     Indication: CONTRACEPTION
  2. OCELLA [Suspect]
     Indication: CONTRACEPTION
  3. YAZ [Suspect]
  4. TRICOR [Concomitant]
     Indication: BLOOD TRIGLYCERIDES INCREASED
     Dosage: UNK
     Dates: start: 1999, end: 2011
  5. LEXAPRO [Concomitant]
     Indication: OBSESSIVE-COMPULSIVE DISORDER
     Dosage: UNK
     Dates: start: 2000
  6. ALEVE [Concomitant]
     Dosage: UNK, AS NEEDED
  7. NORCO [Concomitant]
     Dosage: UNK, AS NEEDED
  8. LEVAQUIN [Concomitant]
     Dosage: 500 MG, UNK
     Dates: start: 20110105
  9. PROVENTIL [Concomitant]
     Dosage: 90 MCG
     Route: 045
     Dates: start: 20110105
  10. HYDROCODONE W/ACETAMINOPHEN [Concomitant]
     Dosage: 5/500
     Dates: start: 20110127
  11. HYDROCODONE W/ACETAMINOPHEN [Concomitant]
     Dosage: UNK
     Dates: start: 20110206
  12. TAMSULOSIN [Concomitant]
     Dosage: 0.4 MG, UNK
     Dates: start: 20110127
  13. CIPROFLOXACIN [Concomitant]
     Dosage: 500 MG, UNK
     Dates: start: 20110127
  14. MELOXICAM [Concomitant]
     Dosage: 7.5 MG, UNK
     Dates: start: 20110127
  15. METAXALONE [Concomitant]
     Dosage: 800 MG, UNK
     Dates: start: 20110127

REACTIONS (10)
  - Deep vein thrombosis [None]
  - Mesenteric artery thrombosis [None]
  - Aortic thrombosis [None]
  - Deep vein thrombosis [None]
  - Pulmonary embolism [None]
  - Renal failure [None]
  - Muscular weakness [None]
  - Injury [None]
  - Pain [None]
  - Pain [None]
